FAERS Safety Report 7214552-X (Version None)
Quarter: 2011Q1

REPORT INFORMATION
  Report Type: 
  Country: None (occurrence: None)
  Receive Date: 20110107
  Receipt Date: 20101231
  Transmission Date: 20110831
  Serious: Yes (Death)
  Sender: FDA-Public Use
  Company Number: US-PFIZER INC-2011002716

PATIENT
  Age: 52 Year
  Sex: Male

DRUGS (2)
  1. ETHANOL [Suspect]
  2. VERAPAMIL HCL [Suspect]

REACTIONS (2)
  - COMPLETED SUICIDE [None]
  - INTENTIONAL DRUG MISUSE [None]
